FAERS Safety Report 7717474-0 (Version None)
Quarter: 2011Q3

REPORT INFORMATION
  Report Type: 
  Country: None (occurrence: None)
  Receive Date: 20110824
  Receipt Date: 20110815
  Transmission Date: 20111222
  Serious: Yes (Other)
  Sender: FDA-Public Use
  Company Number: 2010005128

PATIENT
  Age: 47 Year
  Sex: Male

DRUGS (10)
  1. WARFARIN SODIUM [Suspect]
     Indication: EMBOLISM VENOUS
     Dosage: 2.5 MG, UID/QD
  2. TARCEVA [Suspect]
     Indication: LUNG ADENOCARCINOMA
     Dosage: 150 MG, UID/QD, ORAL
     Route: 048
  3. GRANISETRON [Concomitant]
  4. PACLITAXEL [Concomitant]
  5. CARBOPLATIN [Concomitant]
  6. DARBEPOETIN ALFA (DARBEPOETIN ALFA) [Concomitant]
  7. DIPHENHYDRAMINE HCL [Concomitant]
  8. CIMETIDINE [Concomitant]
  9. BEVACIZUMAB (BEVACIZUMAB) [Concomitant]
  10. DEXAMETHASONE [Concomitant]

REACTIONS (5)
  - INTERNATIONAL NORMALISED RATIO INCREASED [None]
  - DIARRHOEA [None]
  - RASH GENERALISED [None]
  - HAEMARTHROSIS [None]
  - DRUG INTERACTION [None]
